FAERS Safety Report 6414758-3 (Version None)
Quarter: 2009Q4

REPORT INFORMATION
  Report Type: 
  Country: None (occurrence: None)
  Receive Date: 20091026
  Receipt Date: 20091026
  Transmission Date: 20100525
  Serious: Yes (Other)
  Sender: FDA-Public Use
  Company Number: None

PATIENT
  Age: 35 Year
  Sex: Female
  Weight: 50.8029 kg

DRUGS (1)
  1. ZYRTEC [Suspect]
     Indication: URTICARIA
     Dosage: 1 PILL DAILY PO
     Route: 048
     Dates: start: 20090910, end: 20091023

REACTIONS (14)
  - ANXIETY [None]
  - BURNING SENSATION [None]
  - DIZZINESS [None]
  - DRUG DEPENDENCE [None]
  - DRUG WITHDRAWAL SYNDROME [None]
  - DRY MOUTH [None]
  - DRY SKIN [None]
  - ERYTHEMA [None]
  - INSOMNIA [None]
  - LETHARGY [None]
  - PRURITUS [None]
  - SKIN EXFOLIATION [None]
  - URTICARIA [None]
  - WEIGHT INCREASED [None]
